FAERS Safety Report 4324603-8 (Version None)
Quarter: 2004Q1

REPORT INFORMATION
  Report Type: 
  Country: None (occurrence: None)
  Receive Date: 20040323
  Receipt Date: 20040309
  Transmission Date: 20041129
  Serious: Yes (Hospitalization)
  Sender: FDA-Public Use
  Company Number: 2004-BP-01833NB

PATIENT
  Age: 53 Year
  Sex: Male

DRUGS (4)
  1. MIRAPEX [Suspect]
     Indication: PARKINSON'S DISEASE
     Dosage: 2.5 MG (0.5 MG) PO
     Route: 048
     Dates: end: 20040308
  2. BLOPRESS (TA) [Suspect]
     Indication: HYPERTENSION
     Dosage: 8 MG (NR) PO
     Route: 048
     Dates: end: 20040308
  3. ADALAT CC [Suspect]
     Indication: HYPERTENSION
     Dosage: PO
     Route: 048
     Dates: end: 20040308
  4. SINEMET [Suspect]
     Indication: HYPERTENSION
     Dosage: 300 MG (NR)
     Route: 048
     Dates: end: 20040308

REACTIONS (1)
  - APNOEA [None]
